FAERS Safety Report 8572382-0 (Version None)
Quarter: 2012Q3

REPORT INFORMATION
  Report Type: 
  Country: None (occurrence: None)
  Receive Date: 20120806
  Receipt Date: 20090928
  Transmission Date: 20120928
  Serious: Yes (Other)
  Sender: FDA-Public Use
  Company Number: DE-CELGENEUS-062-20785-12060693

PATIENT
  Age: 83 Year
  Sex: Female
  Weight: 98 kg

DRUGS (3)
  1. DEXAMETHASONE [Suspect]
     Indication: MULTIPLE MYELOMA
     Route: 065
     Dates: start: 20090406, end: 20090427
  2. MARCUMAR [Concomitant]
     Indication: ANTICOAGULANT THERAPY
     Route: 065
  3. THALIDOMIDE [Suspect]
     Indication: MULTIPLE MYELOMA
     Route: 048
     Dates: start: 20090406, end: 20090525

REACTIONS (5)
  - PARAPLEGIA [None]
  - NAUSEA [None]
  - ANAEMIA [None]
  - VOMITING [None]
  - CHILLS [None]
